FAERS Safety Report 4647792-4 (Version None)
Quarter: 2005Q2

REPORT INFORMATION
  Report Type: 
  Country: None (occurrence: None)
  Receive Date: 20050427
  Receipt Date: 20050427
  Transmission Date: 20051028
  Serious: Yes (Other)
  Sender: FDA-Public Use
  Company Number: None

PATIENT

DRUGS (1)
  1. CIPRALEX [Suspect]
     Indication: DEPRESSION
     Dosage: 1X 20MG ORAL
     Route: 048

REACTIONS (9)
  - BURNING SENSATION [None]
  - CHILLS [None]
  - FEAR [None]
  - HEART RATE INCREASED [None]
  - HYPERHIDROSIS [None]
  - MYDRIASIS [None]
  - NIGHT SWEATS [None]
  - PALPITATIONS [None]
  - TREMOR [None]
